FAERS Safety Report 23296667 (Version 4)
Quarter: 2024Q1

REPORT INFORMATION
  Report Type: Spontaneous
  Country: TR (occurrence: TR)
  Receive Date: 20231214
  Receipt Date: 20240209
  Transmission Date: 20240410
  Serious: Yes (Death, Hospitalization, Other)
  Sender: FDA-Public Use
  Company Number: TR-BAXTER-2023BAX038065

PATIENT
  Sex: Female

DRUGS (2)
  1. EXTRANEAL [Suspect]
     Active Substance: CALCIUM CHLORIDE\ICODEXTRIN\MAGNESIUM CHLORIDE\SODIUM CHLORIDE\SODIUM LACTATE
     Route: 033
  2. CALCIUM CL\DEXTROSE\MAGNESIUM CL\SODIUM BICAR\SODIUM CL\SODIUM LACT [Suspect]
     Active Substance: CALCIUM CHLORIDE\DEXTROSE MONOHYDRATE\MAGNESIUM CHLORIDE\SODIUM BICARBONATE\SODIUM CHLORIDE\SODIUM L
     Route: 033

REACTIONS (15)
  - Myocardial infarction [Fatal]
  - Loss of consciousness [Not Recovered/Not Resolved]
  - Hyponatraemia [Recovered/Resolved]
  - Peritonitis [Not Recovered/Not Resolved]
  - Vomiting [Recovered/Resolved]
  - Pulse absent [Recovered/Resolved]
  - Hypophagia [Not Recovered/Not Resolved]
  - Hypersomnia [Unknown]
  - Aphasia [Unknown]
  - Agnosia [Unknown]
  - C-reactive protein increased [Unknown]
  - Peripheral swelling [Recovering/Resolving]
  - Peripheral swelling [Recovered/Resolved]
  - Generalised oedema [Recovered/Resolved]
  - Blood pressure abnormal [Unknown]
